FAERS Safety Report 8266660-2 (Version None)
Quarter: 2012Q2

REPORT INFORMATION
  Report Type: 
  Country: None (occurrence: None)
  Receive Date: 20120407
  Receipt Date: 20120404
  Transmission Date: 20120825
  Serious: Yes (Hospitalization)
  Sender: FDA-Public Use
  Company Number: CA-ABBOTT-12P-028-0922214-00

PATIENT
  Sex: Female
  Weight: 39.952 kg

DRUGS (1)
  1. HUMIRA [Suspect]
     Indication: CROHN'S DISEASE
     Route: 058
     Dates: start: 20110304

REACTIONS (5)
  - MALAISE [None]
  - WEIGHT DECREASED [None]
  - GASTROINTESTINAL INFLAMMATION [None]
  - DIARRHOEA [None]
  - HAEMATOCHEZIA [None]
